FAERS Safety Report 10561912 (Version 2)
Quarter: 2015Q1

REPORT INFORMATION
  Report Type: Report from Study
  Country: CA (occurrence: CA)
  Receive Date: 20141104
  Receipt Date: 20150106
  Transmission Date: 20150720
  Serious: Yes (Other)
  Sender: FDA-Public Use
  Company Number: CA-ROCHE-1481711

PATIENT
  Sex: Female

DRUGS (7)
  1. RITUXAN [Suspect]
     Active Substance: RITUXIMAB
     Indication: B-CELL SMALL LYMPHOCYTIC LYMPHOMA
     Route: 065
     Dates: start: 201311
  2. BENDAMUSTINE [Suspect]
     Active Substance: BENDAMUSTINE
     Indication: B-CELL SMALL LYMPHOCYTIC LYMPHOMA
     Route: 065
  3. PREDNISONE. [Suspect]
     Active Substance: PREDNISONE
     Indication: B-CELL SMALL LYMPHOCYTIC LYMPHOMA
     Route: 065
     Dates: start: 201311
  4. EXJADE [Concomitant]
     Active Substance: DEFERASIROX
  5. RITUXAN [Suspect]
     Active Substance: RITUXIMAB
     Indication: B-CELL SMALL LYMPHOCYTIC LYMPHOMA
     Route: 042
     Dates: start: 20141111, end: 20141128
  6. CYCLOPHOSPHAMIDE. [Suspect]
     Active Substance: CYCLOPHOSPHAMIDE
     Indication: B-CELL SMALL LYMPHOCYTIC LYMPHOMA
     Route: 065
     Dates: start: 201311
  7. VINCRISTINE [Suspect]
     Active Substance: VINCRISTINE
     Indication: B-CELL SMALL LYMPHOCYTIC LYMPHOMA
     Route: 065
     Dates: start: 201311

REACTIONS (12)
  - B-cell lymphoma [Unknown]
  - Blood lactate dehydrogenase increased [Unknown]
  - Red blood cell count abnormal [Unknown]
  - Malignant neoplasm progression [Unknown]
  - Non-Hodgkin^s lymphoma [Unknown]
  - Therapy responder [Unknown]
  - Alopecia [Unknown]
  - Hypoaesthesia oral [Unknown]
  - Drug dose omission [Unknown]
  - Cytopenia [Unknown]
  - Fear of injection [Unknown]
  - Disease recurrence [Not Recovered/Not Resolved]
